FAERS Safety Report 20695239 (Version 1)
Quarter: 2022Q2

REPORT INFORMATION
  Report Type: Spontaneous
  Country: US (occurrence: US)
  Receive Date: 20220411
  Receipt Date: 20220411
  Transmission Date: 20220721
  Serious: Yes (Other)
  Sender: FDA-Public Use
  Company Number: US-BRISTOL-MYERS SQUIBB COMPANY-2022-015936

PATIENT
  Age: 89 Year
  Sex: Female
  Weight: 51.7 kg

DRUGS (5)
  1. ELIQUIS [Suspect]
     Active Substance: APIXABAN
     Indication: Atrial fibrillation
     Dosage: DOSE : 2.5MG;     FREQ : TWICE A DAY
     Route: 048
  2. SPIRONOLACTONE [Concomitant]
     Active Substance: SPIRONOLACTONE
  3. AMLODIPINE [Concomitant]
     Active Substance: AMLODIPINE BESYLATE
  4. LOSARTAN [Concomitant]
     Active Substance: LOSARTAN
     Dosage: 1 TABLET, TWICE DAILY
  5. METOPROLOL [Concomitant]
     Active Substance: METOPROLOL
     Dosage: ONCE DAILY

REACTIONS (3)
  - Dysphonia [Unknown]
  - Macular degeneration [Unknown]
  - Memory impairment [Unknown]
